FAERS Safety Report 7720775-3 (Version None)
Quarter: 2011Q3

REPORT INFORMATION
  Report Type: 
  Country: None (occurrence: None)
  Receive Date: 20110825
  Receipt Date: 20110811
  Transmission Date: 20111222
  Serious: Yes (Hospitalization)
  Sender: FDA-Public Use
  Company Number: 15034648

PATIENT
  Age: 68 Year
  Sex: Male

DRUGS (4)
  1. WARFARIN SODIUM [Suspect]
     Indication: THROMBOSIS PROPHYLAXIS
     Dosage: 1 DOSAGE FORM 1 DAY
     Route: 048
     Dates: start: 20100127
  2. ENOXAPARIN SODIUM [Suspect]
     Indication: THROMBOSIS PROPHYLAXIS
     Dosage: 76 MILLIGRAM 2/1 DAY
     Route: 042
     Dates: start: 20100127
  3. APIXABAN [Suspect]
     Indication: THROMBOSIS PROPHYLAXIS
     Dosage: 1 DOSAGE FORM 1 DAY
     Route: 048
     Dates: start: 20100127
  4. PLACEBOA [Suspect]
     Indication: THROMBOSIS PROPHYLAXIS
     Route: 042
     Dates: start: 20100127

REACTIONS (6)
  - PROSTATE CANCER STAGE III [None]
  - HYDRONEPHROSIS [None]
  - NEPHROLITHIASIS [None]
  - URINARY TRACT INFECTION [None]
  - UROSEPSIS [None]
  - ARTHRALGIA [None]
